FAERS Safety Report 5526153-X (Version None)
Quarter: 2007Q4

REPORT INFORMATION
  Report Type: 
  Country: None (occurrence: None)
  Receive Date: 20071120
  Receipt Date: 20071107
  Transmission Date: 20080405
  Serious: Yes (Other)
  Sender: FDA-Public Use
  Company Number: CHNY2007AU03716

PATIENT
  Sex: Female

DRUGS (3)
  1. BENEFIBER W/WHEAT DEXTRIN (NCH) (WHEAT DEXTRIN) POWDER [Suspect]
     Dosage: 3/4 OF A TABLESPOON, ORAL; 2 TSP, BID, ORAL, 2 TSP, ONCE/SINGLE, ORAL
     Route: 048
     Dates: start: 20071105
  2. BENEFIBER W/WHEAT DEXTRIN (NCH) (WHEAT DEXTRIN) POWDER [Suspect]
     Dosage: 3/4 OF A TABLESPOON, ORAL; 2 TSP, BID, ORAL, 2 TSP, ONCE/SINGLE, ORAL
     Route: 048
     Dates: start: 20071106
  3. BENEFIBER W/WHEAT DEXTRIN (NCH) (WHEAT DEXTRIN) POWDER [Suspect]
     Dosage: 3/4 OF A TABLESPOON, ORAL; 2 TSP, BID, ORAL, 2 TSP, ONCE/SINGLE, ORAL
     Route: 048
     Dates: start: 20071107

REACTIONS (3)
  - HYPERSENSITIVITY [None]
  - LIP SWELLING [None]
  - PHARYNGEAL OEDEMA [None]
